FAERS Safety Report 26074644 (Version 1)
Quarter: 2025Q4

REPORT INFORMATION
  Report Type: Spontaneous
  Country: US (occurrence: None)
  Receive Date: 20251120
  Receipt Date: 20251120
  Transmission Date: 20260117
  Serious: Yes (Death)
  Sender: FDA-CTU
  Company Number: None

PATIENT
  Age: 55 Year
  Sex: Female
  Weight: 96.62 kg

DRUGS (6)
  1. OZEMPIC [Suspect]
     Active Substance: SEMAGLUTIDE
  2. DEXTROMETHORPHAN [Suspect]
     Active Substance: DEXTROMETHORPHAN
  3. BUPROPION [Suspect]
     Active Substance: BUPROPION
  4. GABAPENTIN [Suspect]
     Active Substance: GABAPENTIN
  5. CHLORPHENIRAMINE [Suspect]
     Active Substance: CHLORPHENIRAMINE
  6. IBUPROFEN [Suspect]
     Active Substance: IBUPROFEN

REACTIONS (6)
  - Influenza like illness [None]
  - Dyspepsia [None]
  - Cough [None]
  - Type 2 diabetes mellitus [None]
  - Spinal fusion surgery [None]
  - Obesity [None]

NARRATIVE: CASE EVENT DATE: 20250616
